FAERS Safety Report 11106239 (Version 1)
Quarter: 2015Q2

REPORT INFORMATION
  Report Type: Spontaneous
  Country: US (occurrence: None)
  Receive Date: 20150508
  Receipt Date: 20150508
  Transmission Date: 20150821
  Serious: Yes (Hospitalization, Other)
  Sender: FDA-Public Use
  Company Number: DEP_02779_2015

PATIENT
  Age: 15 Year
  Sex: Female

DRUGS (1)
  1. NUCYNTA ER [Suspect]
     Active Substance: TAPENTADOL HYDROCHLORIDE
     Indication: SUICIDE ATTEMPT
     Route: 048
     Dates: start: 20141210

REACTIONS (5)
  - Heart rate increased [None]
  - Blood pressure increased [None]
  - Suicide attempt [None]
  - Intentional overdose [None]
  - Lethargy [None]

NARRATIVE: CASE EVENT DATE: 20141210
